FAERS Safety Report 9038121 (Version 1)
Quarter: 2013Q1

REPORT INFORMATION
  Report Type: Spontaneous
  Country: US (occurrence: US)
  Receive Date: 20130129
  Receipt Date: 20130129
  Transmission Date: 20140127
  Serious: No
  Sender: FDA-Public Use
  Company Number: US-GLAXOSMITHKLINE-A0957716A

PATIENT
  Age: 53 Year
  Sex: Female

DRUGS (2)
  1. WELLBUTRIN [Suspect]
     Indication: DEPRESSION
     Dosage: 150MG THREE TIMES PER DAY
     Route: 048
     Dates: start: 2001, end: 2004
  2. WELLBUTRIN XL [Suspect]
     Indication: DEPRESSION
     Dosage: 450MG PER DAY
     Route: 048
     Dates: start: 2004

REACTIONS (5)
  - Tooth disorder [Unknown]
  - Dental caries [Unknown]
  - Dry mouth [Unknown]
  - Gingival pain [Unknown]
  - Bruxism [Unknown]
